FAERS Safety Report 25524251 (Version 3)
Quarter: 2025Q3

REPORT INFORMATION
  Report Type: Spontaneous
  Country: US (occurrence: US)
  Receive Date: 20250707
  Receipt Date: 20250710
  Transmission Date: 20251021
  Serious: Yes (Life-Threatening, Hospitalization, Other)
  Sender: PFIZER
  Company Number: US-MLMSERVICE-20250625-PI554094-00145-1

PATIENT
  Age: 12 Month
  Sex: Female

DRUGS (1)
  1. FENTANYL CITRATE [Suspect]
     Active Substance: FENTANYL CITRATE

REACTIONS (5)
  - Accidental exposure to product [Unknown]
  - Leukoencephalopathy [Recovering/Resolving]
  - Hypothermia [Unknown]
  - Acute respiratory failure [Unknown]
  - Metabolic acidosis [Unknown]
